FAERS Safety Report 13909211 (Version 1)
Quarter: 2017Q3

REPORT INFORMATION
  Report Type: Spontaneous
  Country: US (occurrence: US)
  Receive Date: 20170828
  Receipt Date: 20170828
  Transmission Date: 20171127
  Serious: No
  Sender: FDA-Public Use
  Company Number: US-ASTRAZENECA-2017SE87084

PATIENT
  Sex: Male
  Weight: 86.6 kg

DRUGS (5)
  1. OXYCONTIN [Concomitant]
     Active Substance: OXYCODONE HYDROCHLORIDE
     Indication: BACK PAIN
     Route: 048
  2. MEDICAL MARIJUANA OIL [Concomitant]
     Indication: BACK PAIN
     Dosage: VIA VAPORIZER, 2 TO 3 PUFFS
     Route: 050
  3. MOVANTIK [Suspect]
     Active Substance: NALOXEGOL OXALATE
     Indication: CONSTIPATION
     Route: 048
     Dates: start: 201706
  4. OXYCODONE [Concomitant]
     Active Substance: OXYCODONE
     Indication: BACK PAIN
     Route: 048
  5. MEDICAL MARIJUANA OIL [Concomitant]
     Indication: ABDOMINAL PAIN
     Dosage: VIA VAPORIZER, 2 TO 3 PUFFS
     Route: 050

REACTIONS (5)
  - Gastrointestinal disorder [Unknown]
  - Infrequent bowel movements [Unknown]
  - Insomnia [Unknown]
  - Abdominal pain [Unknown]
  - Gastrointestinal motility disorder [Unknown]
